FAERS Safety Report 11456571 (Version 2)
Quarter: 2015Q3

REPORT INFORMATION
  Report Type: Spontaneous
  Country: US (occurrence: US)
  Receive Date: 20150903
  Receipt Date: 20150910
  Transmission Date: 20151125
  Serious: Yes (Other)
  Sender: FDA-Public Use
  Company Number: US-LUNDBECK-DKLU2003270

PATIENT
  Sex: Male

DRUGS (3)
  1. MIDODRINE [Concomitant]
     Active Substance: MIDODRINE
     Indication: PRODUCT USED FOR UNKNOWN INDICATION
     Route: 065
  2. NORTHERA [Suspect]
     Active Substance: DROXIDOPA
     Indication: PARKINSON^S DISEASE
     Route: 065
     Dates: start: 20150721
  3. NORTHERA [Suspect]
     Active Substance: DROXIDOPA
     Indication: ORTHOSTATIC HYPOTENSION

REACTIONS (8)
  - White blood cell count increased [Recovered/Resolved]
  - Disorientation [Unknown]
  - Blood pressure fluctuation [Recovering/Resolving]
  - Blood glucose decreased [Unknown]
  - Confusional state [Not Recovered/Not Resolved]
  - Irritability [Unknown]
  - Cerebrovascular accident [Unknown]
  - Malaise [Recovering/Resolving]
